FAERS Safety Report 8572513-2 (Version None)
Quarter: 2012Q2

REPORT INFORMATION
  Report Type: 
  Country: None (occurrence: None)
  Receive Date: 20120423
  Receipt Date: 20101011
  Transmission Date: 20120825
  Serious: Yes (Other)
  Sender: FDA-Public Use
  Company Number: PHHY2010US33295

PATIENT
  Age: 73 Year
  Sex: Male
  Weight: 93 kg

DRUGS (1)
  1. EXJADE [Suspect]
     Dosage: 250 MG DAILY, ORAL
     Route: 048
     Dates: start: 20100810

REACTIONS (4)
  - DIARRHOEA [None]
  - MALAISE [None]
  - PRURITUS [None]
  - DRUG DOSE OMISSION [None]
